FAERS Safety Report 10811457 (Version 1)
Quarter: 2015Q1

REPORT INFORMATION
  Report Type: Report from Study
  Country: JP (occurrence: None)
  Receive Date: 20150212
  Receipt Date: 20150212
  Transmission Date: 20150721
  Serious: Yes (Hospitalization)
  Sender: FDA-Public Use
  Company Number: 2015SGN00162

PATIENT
  Age: 75 Year
  Sex: Male
  Weight: 71.8 kg

DRUGS (1)
  1. ADCETRIS [Suspect]
     Active Substance: BRENTUXIMAB VEDOTIN
     Indication: ANAPLASTIC LARGE-CELL LYMPHOMA
     Dosage: Q21D
     Route: 041
     Dates: start: 20140820, end: 20140820

REACTIONS (2)
  - Interstitial lung disease [None]
  - Neutropenia [None]

NARRATIVE: CASE EVENT DATE: 20140904
